FAERS Safety Report 12918036 (Version 1)
Quarter: 2016Q4

REPORT INFORMATION
  Report Type: Spontaneous
  Country: US (occurrence: US)
  Receive Date: 20161107
  Receipt Date: 20161107
  Transmission Date: 20170207
  Serious: Yes (Hospitalization)
  Sender: FDA-Public Use
  Company Number: US-US WORLDMEDS, LLC-USW201610-000726

PATIENT
  Sex: Male
  Weight: 94.8 kg

DRUGS (1)
  1. APOKYN [Suspect]
     Active Substance: APOMORPHINE HYDROCHLORIDE
     Indication: PARKINSON^S DISEASE
     Route: 058

REACTIONS (4)
  - Mental disorder [Recovering/Resolving]
  - Circumstance or information capable of leading to medication error [Unknown]
  - Coronary artery occlusion [Recovering/Resolving]
  - Tachycardia [Recovering/Resolving]
